FAERS Safety Report 9293250 (Version 6)
Quarter: 2015Q3

REPORT INFORMATION
  Report Type: Spontaneous
  Country: US (occurrence: US)
  Receive Date: 20130516
  Receipt Date: 20150831
  Transmission Date: 20151125
  Serious: Yes (Hospitalization, Other)
  Sender: FDA-Public Use
  Company Number: US-009507513-1305USA009418

PATIENT
  Sex: Male

DRUGS (2)
  1. PROPECIA [Suspect]
     Active Substance: FINASTERIDE
     Dosage: 1 MG, QD
     Route: 048
     Dates: start: 20061229, end: 20120710
  2. PROPECIA [Suspect]
     Active Substance: FINASTERIDE
     Indication: ALOPECIA
     Dosage: 1 MG, QD
     Route: 048
     Dates: start: 20050107, end: 20061002

REACTIONS (25)
  - Weight increased [Unknown]
  - Infection [Unknown]
  - Back pain [Unknown]
  - Libido decreased [Unknown]
  - Erectile dysfunction [Not Recovered/Not Resolved]
  - Angina unstable [Unknown]
  - Arteriosclerosis coronary artery [Unknown]
  - Coronary arterial stent insertion [Unknown]
  - Angioplasty [Unknown]
  - Arthritis [Unknown]
  - Osteoarthritis [Unknown]
  - Sexual dysfunction [Not Recovered/Not Resolved]
  - Knee arthroplasty [Unknown]
  - Angioplasty [Unknown]
  - Drug ineffective [Unknown]
  - Atrial fibrillation [Recovered/Resolved]
  - Hypertension [Unknown]
  - Hyperlipidaemia [Unknown]
  - Cardiac disorder [Unknown]
  - Pain [Unknown]
  - Weight abnormal [Unknown]
  - Upper respiratory tract infection [Unknown]
  - Coronary arterial stent insertion [Unknown]
  - Pain in extremity [Unknown]
  - Upper respiratory tract infection [Recovered/Resolved]

NARRATIVE: CASE EVENT DATE: 200601
